FAERS Safety Report 7897093-6 (Version None)
Quarter: 2011Q4

REPORT INFORMATION
  Report Type: 
  Country: None (occurrence: None)
  Receive Date: 20111107
  Receipt Date: 20111017
  Transmission Date: 20120403
  Serious: Yes (Death)
  Sender: FDA-Public Use
  Company Number: BR-GENZYME-FABR-1002193

PATIENT
  Sex: Male

DRUGS (1)
  1. FABRAZYME [Suspect]
     Indication: FABRY'S DISEASE
     Dosage: UNK UNK, UNK
     Route: 042
     Dates: start: 20071115

REACTIONS (1)
  - CEREBROVASCULAR ACCIDENT [None]
